FAERS Safety Report 23443013 (Version 1)
Quarter: 2024Q1

REPORT INFORMATION
  Report Type: Spontaneous
  Country: US (occurrence: US)
  Receive Date: 20240125
  Receipt Date: 20240125
  Transmission Date: 20240410
  Serious: No
  Sender: FDA-Public Use
  Company Number: US-PFIZER INC-202400022890

PATIENT
  Age: 77 Year
  Sex: Male

DRUGS (1)
  1. IBRANCE [Suspect]
     Active Substance: PALBOCICLIB
     Dosage: 125 MG, CYCLIC (1 TABLET DAILY FOR 21 DAYS ON, THEN 7 DAYS OFF )
     Dates: start: 20231117

REACTIONS (2)
  - Constipation [Recovering/Resolving]
  - Fatigue [Recovering/Resolving]
